FAERS Safety Report 17651219 (Version 2)
Quarter: 2020Q2

REPORT INFORMATION
  Report Type: Spontaneous
  Country: JP (occurrence: JP)
  Receive Date: 20200409
  Receipt Date: 20200429
  Transmission Date: 20200713
  Serious: Yes (Hospitalization)
  Sender: FDA-Public Use
  Company Number: JP-AMGEN-JPNSP2020057314

PATIENT
  Age: 62 Year
  Sex: Male
  Weight: 84.5 kg

DRUGS (8)
  1. P-TOL [SUCROFERRIC OXYHYDROXIDE] [Concomitant]
     Dosage: 750 MILLIGRAM, QD
     Route: 065
  2. PARSABIV [Suspect]
     Active Substance: ETELCALCETIDE HYDROCHLORIDE
     Indication: HYPERPARATHYROIDISM SECONDARY
     Dosage: 2.5 MG, Q56H
     Route: 010
     Dates: start: 20181115
  3. NESP [Concomitant]
     Active Substance: DARBEPOETIN ALFA
     Dosage: 60 MICROGRAM, QWK
     Route: 065
     Dates: start: 20191014
  4. RENAGEL [SEVELAMER CARBONATE] [Concomitant]
     Dosage: 3000 MILLIGRAM, QD
     Route: 065
  5. OXAROL [Concomitant]
     Active Substance: MAXACALCITOL
     Dosage: 5 MUG, Q56H
     Route: 065
  6. NESP [Concomitant]
     Active Substance: DARBEPOETIN ALFA
     Dosage: 30 MUG, QW
     Route: 065
     Dates: end: 20191007
  7. DARBEPOETIN ALFA [Concomitant]
     Active Substance: DARBEPOETIN ALFA
     Dosage: 60 UG, QW
     Route: 065
     Dates: start: 20191014
  8. OXAROL [Concomitant]
     Active Substance: MAXACALCITOL
     Dosage: 5 MICROGRAM, 3 TIMES/WK
     Route: 065

REACTIONS (1)
  - Lumbar spinal stenosis [Recovering/Resolving]

NARRATIVE: CASE EVENT DATE: 20191202
